FAERS Safety Report 5150818-5 (Version None)
Quarter: 2006Q4

REPORT INFORMATION
  Report Type: 
  Country: None (occurrence: None)
  Receive Date: 20061114
  Receipt Date: 20061109
  Transmission Date: 20070319
  Serious: Yes (Hospitalization)
  Sender: FDA-Public Use
  Company Number: AU-BRISTOL-MYERS SQUIBB COMPANY-13572649

PATIENT
  Age: 20 Year
  Sex: Female

DRUGS (4)
  1. ARIPIPRAZOLE [Suspect]
     Route: 048
     Dates: start: 20051025, end: 20051101
  2. LISINOPRIL [Concomitant]
     Indication: DIABETES MELLITUS
  3. NOVORAPID [Concomitant]
     Indication: DIABETES MELLITUS
     Route: 058
  4. INSULIN GLARGINE [Concomitant]
     Indication: DIABETES MELLITUS
     Route: 058

REACTIONS (2)
  - DIABETIC KETOACIDOSIS [None]
  - THERAPY REGIMEN CHANGED [None]
